FAERS Safety Report 11310925 (Version 1)
Quarter: 2015Q3

REPORT INFORMATION
  Report Type: Spontaneous
  Country: AT (occurrence: AT)
  Receive Date: 20150726
  Receipt Date: 20150726
  Transmission Date: 20151125
  Serious: Yes (Other)
  Sender: FDA-Public Use
  Company Number: AT-009507513-1507AUT005769

PATIENT
  Age: 30 Year
  Sex: Female

DRUGS (3)
  1. NUVARING [Suspect]
     Active Substance: ETHINYL ESTRADIOL\ETONOGESTREL
     Dosage: LAST RING, Q3W
     Route: 067
     Dates: start: 20150519, end: 20150608
  2. NUVARING [Suspect]
     Active Substance: ETHINYL ESTRADIOL\ETONOGESTREL
     Indication: CONTRACEPTION
     Dosage: FIRST RING
     Route: 067
     Dates: start: 2011
  3. NUVARING [Suspect]
     Active Substance: ETHINYL ESTRADIOL\ETONOGESTREL
     Dosage: THE RING BEFORE THE LAST RING
     Route: 067
     Dates: start: 201504, end: 20150512

REACTIONS (1)
  - Pregnancy on contraceptive [Unknown]
